FAERS Safety Report 10014809 (Version 2)
Quarter: 2014Q2

REPORT INFORMATION
  Report Type: Spontaneous
  Country: US (occurrence: US)
  Receive Date: 20140317
  Receipt Date: 20140424
  Transmission Date: 20141212
  Serious: No
  Sender: FDA-Public Use
  Company Number: US-ROXANE LABORATORIES, INC.-2014-RO-00382RO

PATIENT
  Age: 76 Year
  Sex: Male

DRUGS (2)
  1. HYDROMORPHONE [Suspect]
     Indication: PAIN
     Route: 048
     Dates: start: 2006
  2. CLOZAPINE [Concomitant]
     Indication: RESTLESS LEGS SYNDROME
     Route: 065

REACTIONS (3)
  - Drug ineffective [Recovered/Resolved]
  - Drug withdrawal syndrome [Recovered/Resolved]
  - Product quality issue [Unknown]
